FAERS Safety Report 6382943-5 (Version None)
Quarter: 2009Q3

REPORT INFORMATION
  Report Type: 
  Country: None (occurrence: None)
  Receive Date: 20090930
  Receipt Date: 20090916
  Transmission Date: 20100115
  Serious: Yes (Other)
  Sender: FDA-Public Use
  Company Number: BR-PFIZER INC-2009269686

PATIENT
  Age: 64 Year

DRUGS (6)
  1. CHAMPIX [Suspect]
     Indication: SMOKING CESSATION THERAPY
     Dosage: UNK
     Route: 048
     Dates: start: 20090801
  2. ALPRAZOLAM [Suspect]
     Indication: ANXIETY
     Dosage: 1 MG, UNK
  3. ALPRAZOLAM [Suspect]
     Dosage: 0.5 MG, UNK
  4. LOSARTAN [Concomitant]
     Dosage: 100 MG, UNK
  5. AMLODIPINE [Concomitant]
     Dosage: 5 MG, UNK
  6. PURAN T4 [Concomitant]
     Dosage: 100 MG, UNK

REACTIONS (14)
  - ACTIVITIES OF DAILY LIVING IMPAIRED [None]
  - ANXIETY [None]
  - APATHY [None]
  - CHEST DISCOMFORT [None]
  - CHILLS [None]
  - DECREASED APPETITE [None]
  - DYSPHONIA [None]
  - FEELING ABNORMAL [None]
  - FEELING HOT [None]
  - INSOMNIA [None]
  - MALAISE [None]
  - NAUSEA [None]
  - SEDATION [None]
  - SOMNOLENCE [None]
